FAERS Safety Report 8888913 (Version 1)
Quarter: 2012Q4

REPORT INFORMATION
  Report Type: 
  Country: US (occurrence: US)
  Receive Date: 20121106
  Receipt Date: 20121106
  Transmission Date: 20130627
  Serious: Yes (Hospitalization)
  Sender: FDA-Public Use
  Company Number: US-ASTRAZENECA-2011SE75564

PATIENT
  Sex: Male

DRUGS (3)
  1. CRESTOR [Suspect]
     Route: 048
  2. METFORMIN [Concomitant]
  3. BENACAR HCT [Concomitant]
     Dosage: 40/12 MG

REACTIONS (1)
  - Rhabdomyolysis [Unknown]
